FAERS Safety Report 9112795 (Version 1)
Quarter: 2013Q1

REPORT INFORMATION
  Report Type: Spontaneous
  Country: GR (occurrence: GR)
  Receive Date: 20130211
  Receipt Date: 20130211
  Transmission Date: 20140127
  Serious: Yes (Hospitalization)
  Sender: FDA-Public Use
  Company Number: GR-ASTRAZENECA-2013SE07772

PATIENT
  Age: 71 Year
  Sex: Female

DRUGS (11)
  1. ATENOLOL [Suspect]
     Indication: HYPERTENSION
     Route: 048
  2. OMEPRAZOLE [Suspect]
     Indication: GASTRITIS PROPHYLAXIS
     Route: 048
  3. GLIMEPIRIDE [Suspect]
     Indication: DIABETES MELLITUS
     Route: 048
  4. METFORMIN [Suspect]
     Indication: DIABETES MELLITUS
     Route: 048
  5. VALSARTAN [Suspect]
     Indication: HYPERTENSION
     Route: 048
  6. BROMAZEPAM [Suspect]
     Indication: AGITATED DEPRESSION
     Route: 048
  7. ATORVASTATIN [Suspect]
     Indication: DYSLIPIDAEMIA
     Route: 048
  8. LACIDIPINE [Suspect]
     Indication: HYPERTENSION
     Route: 048
  9. INDAPAMIDE [Suspect]
     Indication: HYPERTENSION
     Route: 048
  10. FLUOXETINE HYDROCHLORIDE [Suspect]
     Indication: AGITATED DEPRESSION
     Route: 048
  11. TRIMETAZIDINE [Suspect]
     Indication: VERTIGO
     Route: 048

REACTIONS (1)
  - Drug-induced liver injury [Recovered/Resolved]
